FAERS Safety Report 23904967 (Version 1)
Quarter: 2024Q2

REPORT INFORMATION
  Report Type: Spontaneous
  Country: VN (occurrence: VN)
  Receive Date: 20240527
  Receipt Date: 20240527
  Transmission Date: 20240716
  Serious: Yes (Hospitalization, Other)
  Sender: FDA-Public Use
  Company Number: VN-Long Grove-000049

PATIENT
  Age: 76 Year
  Sex: Male

DRUGS (2)
  1. NOREPINEPHRINE [Suspect]
     Active Substance: NOREPINEPHRINE\NOREPINEPHRINE BITARTRATE
     Indication: Acute myocardial infarction
     Dosage: 0.1 UG/KG/MIN
  2. DOBUTAMINE [Suspect]
     Active Substance: DOBUTAMINE HYDROCHLORIDE
     Indication: Acute myocardial infarction
     Dosage: 5 G/KG/MIN

REACTIONS (2)
  - Acquired left ventricle outflow tract obstruction [Recovered/Resolved]
  - Systolic anterior motion of mitral valve [Recovered/Resolved]
